FAERS Safety Report 5284400-6 (Version None)
Quarter: 2007Q1

REPORT INFORMATION
  Report Type: 
  Country: None (occurrence: None)
  Receive Date: 20070328
  Receipt Date: 20070321
  Transmission Date: 20070707
  Serious: Yes (Other)
  Sender: FDA-Public Use
  Company Number: GXKR2007DE02688

PATIENT
  Sex: Male

DRUGS (1)
  1. PREDNISONE [Suspect]
     Indication: COLITIS ULCERATIVE
     Dosage: ORAL
     Route: 048

REACTIONS (1)
  - DEEP VEIN THROMBOSIS [None]
